FAERS Safety Report 5222602-5 (Version None)
Quarter: 2007Q1

REPORT INFORMATION
  Report Type: 
  Country: None (occurrence: None)
  Receive Date: 20061201
  Receipt Date: 20060714
  Transmission Date: 20070707
  Serious: No
  Sender: FDA-Public Use
  Company Number: 2006PV017575

PATIENT
  Age: 77 Year
  Sex: Male
  Weight: 72.5755 kg

DRUGS (16)
  1. BYETTA [Suspect]
     Indication: DIABETES MELLITUS NON-INSULIN-DEPENDENT
     Dosage: SEE IMAGE
     Route: 058
     Dates: start: 20060601, end: 20060701
  2. BYETTA [Suspect]
     Indication: DIABETES MELLITUS NON-INSULIN-DEPENDENT
     Dosage: SEE IMAGE
     Route: 058
     Dates: start: 20060501, end: 20060711
  3. BYETTA [Suspect]
     Indication: DIABETES MELLITUS NON-INSULIN-DEPENDENT
     Dosage: SEE IMAGE
     Route: 058
     Dates: start: 20060712
  4. TIKOSYN [Suspect]
     Dosage: 125 MG;BID;PO
     Route: 048
     Dates: start: 20050101, end: 20060701
  5. GLUCOTROL [Concomitant]
  6. METFORMIN HCL [Concomitant]
  7. TOPROL-XL [Concomitant]
  8. TOPROL-XL [Concomitant]
  9. DIGITEK [Concomitant]
  10. LASIX [Concomitant]
  11. PRINIVIL [Concomitant]
  12. COUMADIN [Concomitant]
  13. TRICOR [Concomitant]
  14. ZETIA [Concomitant]
  15. LIPITOR [Concomitant]
  16. METFORMIN [Concomitant]

REACTIONS (6)
  - BLOOD GLUCOSE DECREASED [None]
  - BLOOD GLUCOSE INCREASED [None]
  - DECREASED APPETITE [None]
  - DIZZINESS [None]
  - INJECTION SITE PAIN [None]
  - WEIGHT DECREASED [None]
